FAERS Safety Report 18999716 (Version 1)
Quarter: 2021Q1

REPORT INFORMATION
  Report Type: Spontaneous
  Country: FR (occurrence: FR)
  Receive Date: 20210311
  Receipt Date: 20210311
  Transmission Date: 20210420
  Serious: Yes (Other)
  Sender: FDA-Public Use
  Company Number: FR-PFIZER INC-2021232138

PATIENT
  Age: 87 Year
  Sex: Male

DRUGS (3)
  1. DALACINE [Suspect]
     Active Substance: CLINDAMYCIN
     Indication: INFECTION
     Dosage: UNK
     Route: 048
     Dates: start: 20210131, end: 20210202
  2. BIPRETERAX [INDAPAMIDE;PERINDOPRIL ARGININE] [Suspect]
     Active Substance: INDAPAMIDE\PERINDOPRIL ARGININE
     Indication: HYPERTENSION
     Dosage: UNK
     Route: 048
     Dates: end: 20210202
  3. ASPEGIC [ACETYLSALICYLATE LYSINE] [Suspect]
     Active Substance: ASPIRIN DL-LYSINE
     Indication: THROMBOSIS
     Dosage: UNK
     Route: 048
     Dates: start: 20210131, end: 20210202

REACTIONS (1)
  - Palatal oedema [Unknown]

NARRATIVE: CASE EVENT DATE: 20210202
